FAERS Safety Report 17568380 (Version 2)
Quarter: 2020Q3

REPORT INFORMATION
  Report Type: Spontaneous
  Country: US (occurrence: US)
  Receive Date: 20200320
  Receipt Date: 20200727
  Transmission Date: 20201102
  Serious: No
  Sender: FDA-Public Use
  Company Number: US-GE HEALTHCARE LIFE SCIENCES-2020CSU000898

PATIENT

DRUGS (2)
  1. OMNIPAQUE [Suspect]
     Active Substance: IOHEXOL
     Indication: PRODUCT USED FOR UNKNOWN INDICATION
  2. OMNIPAQUE [Suspect]
     Active Substance: IOHEXOL
     Indication: DIAGNOSTIC PROCEDURE
     Dosage: UNK UNK, SINGLE
     Route: 065

REACTIONS (1)
  - Pruritus [Unknown]
